FAERS Safety Report 7146563-7 (Version None)
Quarter: 2010Q4

REPORT INFORMATION
  Report Type: 
  Country: None (occurrence: None)
  Receive Date: 20101208
  Receipt Date: 20101130
  Transmission Date: 20110411
  Serious: Yes (Hospitalization)
  Sender: FDA-Public Use
  Company Number: CA-PFIZER INC-2010162950

PATIENT
  Sex: Female

DRUGS (1)
  1. EFFEXOR XR [Suspect]
     Indication: HOT FLUSH
     Dosage: 75 MG, 1X/DAY
     Dates: start: 20000101

REACTIONS (2)
  - DRUG WITHDRAWAL SYNDROME [None]
  - KNEE ARTHROPLASTY [None]
